FAERS Safety Report 13090575 (Version 2)
Quarter: 2017Q1

REPORT INFORMATION
  Report Type: Spontaneous
  Country: RU (occurrence: RU)
  Receive Date: 20170105
  Receipt Date: 20170220
  Transmission Date: 20170428
  Serious: Yes (Hospitalization, Other)
  Sender: FDA-Public Use
  Company Number: RU-BAUSCH-BL-2017-000239

PATIENT
  Sex: Female

DRUGS (5)
  1. PREDNISOLONE. [Suspect]
     Active Substance: PREDNISOLONE
     Dosage: WITH DECREASE TO 1 TABLET PER MONTH UP TO 15 MG DAILY
     Route: 048
  2. PENTOXIFYLLINE. [Suspect]
     Active Substance: PENTOXIFYLLINE
     Indication: PRODUCT USED FOR UNKNOWN INDICATION
     Route: 048
  3. TOCOPHEROL [Concomitant]
     Active Substance: TOCOPHEROL
     Indication: SARCOIDOSIS
     Dosage: MORNING AND EVENING
     Dates: start: 2003
  4. PREDNISOLONE. [Suspect]
     Active Substance: PREDNISOLONE
     Indication: SARCOIDOSIS
     Route: 048
     Dates: start: 2005
  5. N-ACETYLCYSTEINE [Concomitant]
     Active Substance: ACETYLCYSTEINE
     Indication: SARCOIDOSIS

REACTIONS (11)
  - Nausea [Recovering/Resolving]
  - Intestinal haemorrhage [Recovering/Resolving]
  - Hypotension [Recovered/Resolved]
  - Weight increased [Recovering/Resolving]
  - Cushing^s syndrome [Recovering/Resolving]
  - Duodenal ulcer [Recovering/Resolving]
  - Asthenia [Recovering/Resolving]
  - Headache [Recovered/Resolved]
  - Hypertension [Recovering/Resolving]
  - Rectal haemorrhage [Recovering/Resolving]
  - Thrombophlebitis [Recovering/Resolving]

NARRATIVE: CASE EVENT DATE: 2006
